FAERS Safety Report 10995694 (Version 6)
Quarter: 2016Q3

REPORT INFORMATION
  Report Type: Report from Study
  Country: DE (occurrence: DE)
  Receive Date: 20150407
  Receipt Date: 20160816
  Transmission Date: 20161109
  Serious: Yes (Death, Hospitalization, Other)
  Sender: FDA-Public Use
  Company Number: DE-SA-2015SA039083

PATIENT
  Age: 34 Year
  Sex: Female
  Weight: 80 kg

DRUGS (5)
  1. FAMPYRA [Concomitant]
     Active Substance: DALFAMPRIDINE
     Indication: GAIT DISTURBANCE
  2. LIORESAL [Concomitant]
     Active Substance: BACLOFEN
     Indication: MUSCLE SPASTICITY
     Dates: start: 2012
  3. LEMTRADA [Suspect]
     Active Substance: ALEMTUZUMAB
     Indication: RELAPSING-REMITTING MULTIPLE SCLEROSIS
     Route: 041
     Dates: start: 20140630, end: 20140704
  4. SERTRALINE [Concomitant]
     Active Substance: SERTRALINE HYDROCHLORIDE
     Indication: DEPRESSION
  5. SPASMEX [Concomitant]
     Active Substance: TROSPIUM CHLORIDE
     Indication: NEUROGENIC BLADDER

REACTIONS (11)
  - Leukoencephalopathy [Fatal]
  - Septic shock [Fatal]
  - Myelodysplastic syndrome [Unknown]
  - Autoimmune haemolytic anaemia [Fatal]
  - Abdominal pain [Unknown]
  - Jaundice [Unknown]
  - Disseminated intravascular coagulation [Not Recovered/Not Resolved]
  - Respiratory failure [Not Recovered/Not Resolved]
  - Cardio-respiratory arrest [Fatal]
  - Loss of consciousness [Fatal]
  - Lower respiratory tract infection [Fatal]

NARRATIVE: CASE EVENT DATE: 2015
